FAERS Safety Report 15750157 (Version 2)
Quarter: 2018Q4

REPORT INFORMATION
  Report Type: Report from Study
  Country: TH (occurrence: TH)
  Receive Date: 20181221
  Receipt Date: 20181226
  Transmission Date: 20190205
  Serious: Yes (Other)
  Sender: FDA-Public Use
  Company Number: TH-PFIZER INC-2018521153

PATIENT
  Age: 6 Month
  Sex: Female

DRUGS (11)
  1. IMMUNOGLOBULIN HUMAN NORMAL [Suspect]
     Active Substance: HUMAN IMMUNOGLOBULIN G
     Indication: IMMUNOMODULATORY THERAPY
     Dosage: UNK
  2. PYRIDOXINE [Suspect]
     Active Substance: PYRIDOXINE
     Indication: STATUS EPILEPTICUS
     Dosage: UNK
     Route: 042
  3. PHENYTOIN SODIUM. [Suspect]
     Active Substance: PHENYTOIN SODIUM
     Indication: STATUS EPILEPTICUS
     Dosage: UNK
     Route: 042
  4. SODIUM VALPROATE [Suspect]
     Active Substance: VALPROATE SODIUM
     Indication: STATUS EPILEPTICUS
     Dosage: UNK
     Route: 042
  5. IMMUNOGLOBULIN HUMAN NORMAL [Suspect]
     Active Substance: HUMAN IMMUNOGLOBULIN G
     Indication: STATUS EPILEPTICUS
  6. PHENOBARBITAL. [Suspect]
     Active Substance: PHENOBARBITAL
     Indication: STATUS EPILEPTICUS
     Dosage: UNK
     Route: 042
  7. PROPOFOL. [Suspect]
     Active Substance: PROPOFOL
     Indication: ANAESTHESIA
     Dosage: UNK
  8. MIDAZOLAM [Suspect]
     Active Substance: MIDAZOLAM HYDROCHLORIDE
     Indication: ANAESTHESIA
     Dosage: UNK
  9. DIAZEPAM. [Suspect]
     Active Substance: DIAZEPAM
     Indication: SEIZURE
     Dosage: UNK
     Route: 042
  10. LEVETIRACETAM. [Suspect]
     Active Substance: LEVETIRACETAM
     Indication: STATUS EPILEPTICUS
     Dosage: UNK
     Route: 042
  11. PYRIDOXAL 5 PHOSPHATE [Suspect]
     Active Substance: PYRIDOXAL PHOSPHATE
     Indication: STATUS EPILEPTICUS
     Dosage: 30 MG/KG, DAILY

REACTIONS (3)
  - Respiratory depression [Unknown]
  - Propofol infusion syndrome [Unknown]
  - Drug ineffective [Unknown]
